FAERS Safety Report 20759864 (Version 1)
Quarter: 2022Q2

REPORT INFORMATION
  Report Type: Spontaneous
  Country: US (occurrence: US)
  Receive Date: 20220427
  Receipt Date: 20220427
  Transmission Date: 20220720
  Serious: Yes (Other)
  Sender: FDA-Public Use
  Company Number: US-NOVEN PHARMACEUTICALS, INC.-2021-NOV-US004088

PATIENT
  Age: 5 Year
  Sex: Male

DRUGS (3)
  1. DAYTRANA [Suspect]
     Active Substance: METHYLPHENIDATE
     Indication: Attention deficit hyperactivity disorder
     Dosage: 10MG/9HOURS, UNK
     Route: 062
     Dates: start: 20211125, end: 20211126
  2. METHYLPHENIDATE [Concomitant]
     Active Substance: METHYLPHENIDATE
     Indication: Attention deficit hyperactivity disorder
     Dosage: UNK, MORNING
     Route: 048
  3. METHYLPHENIDATE [Concomitant]
     Active Substance: METHYLPHENIDATE
     Indication: Attention deficit hyperactivity disorder
     Dosage: UNK, AFTERNOON
     Route: 048

REACTIONS (7)
  - Device issue [Recovered/Resolved]
  - Device difficult to use [Recovered/Resolved]
  - Device adhesion issue [Recovered/Resolved]
  - Therapeutic product ineffective [Recovered/Resolved]
  - Intentional removal of drug delivery system by patient [Recovered/Resolved]
  - Product administration error [Recovered/Resolved]
  - Off label use [Recovered/Resolved]

NARRATIVE: CASE EVENT DATE: 20211125
